FAERS Safety Report 9502998 (Version 2)
Quarter: 2013Q3

REPORT INFORMATION
  Report Type: Report from Study
  Country: US (occurrence: US)
  Receive Date: 20130906
  Receipt Date: 20130925
  Transmission Date: 20140515
  Serious: Yes (Hospitalization)
  Sender: FDA-Public Use
  Company Number: US-ASTELLAS-2013US009390

PATIENT
  Age: 74 Year
  Sex: Male
  Weight: 93 kg

DRUGS (11)
  1. BLINDED ENZALUTAMIDE [Suspect]
     Indication: PROSTATE CANCER
     Dosage: UID/QD
     Route: 048
     Dates: start: 20120217, end: 20130822
  2. NEXIUM                             /01479302/ [Concomitant]
     Indication: GASTROOESOPHAGEAL REFLUX DISEASE
     Dosage: 40 MG, UID/QD
     Route: 065
     Dates: start: 2009
  3. LEXAPRO [Concomitant]
     Indication: ANXIETY
     Dosage: 10 MG, UID/QD
     Route: 065
     Dates: start: 2007
  4. LEXAPRO [Concomitant]
     Indication: DEPRESSION
  5. LOSARTAN [Concomitant]
     Indication: HYPERTENSION
     Dosage: 25 MG, UID/QD
     Route: 065
     Dates: start: 201109
  6. DIOVAN [Concomitant]
     Indication: HYPERTENSION
     Dosage: 320 MG, UID/QD
     Route: 048
     Dates: start: 20120416
  7. AMLODIPINE [Concomitant]
     Indication: HYPERTENSION
     Dosage: 5 MG, UID/QD
     Route: 048
     Dates: start: 20120416
  8. XGEVA [Concomitant]
     Indication: PROPHYLAXIS
     Dosage: 120 MG, MONTHLY
     Route: 058
     Dates: start: 20120307
  9. CELEBREX [Concomitant]
     Indication: BACK PAIN
     Dosage: 200 MG, PRN
     Route: 048
     Dates: start: 201304
  10. HYDROCODONE [Concomitant]
     Indication: BACK PAIN
     Dosage: 5/325MG
     Route: 048
     Dates: start: 20130620
  11. IBUPROFEN [Concomitant]
     Indication: BACK PAIN
     Dosage: 600 MG, Q3 HOURS
     Route: 048
     Dates: start: 20130620

REACTIONS (1)
  - Transitional cell carcinoma [Not Recovered/Not Resolved]
